FAERS Safety Report 9832625 (Version 3)
Quarter: 2014Q3

REPORT INFORMATION
  Report Type: Spontaneous
  Country: US (occurrence: US)
  Receive Date: 20140121
  Receipt Date: 20140827
  Transmission Date: 20150326
  Serious: Yes (Other)
  Sender: FDA-Public Use
  Company Number: US-009507513-1401USA007550

PATIENT
  Sex: Female
  Weight: 74.83 kg

DRUGS (1)
  1. NUVARING [Suspect]
     Active Substance: ETHINYL ESTRADIOL\ETONOGESTREL
     Dosage: UNK
     Route: 067
     Dates: start: 20120702, end: 20130204

REACTIONS (10)
  - Mesenteric vein thrombosis [Unknown]
  - Thrombocytosis [Unknown]
  - Protein C deficiency [Unknown]
  - International normalised ratio abnormal [Unknown]
  - Renal vein thrombosis [Unknown]
  - Coagulopathy [Unknown]
  - Pelvic inflammatory disease [Unknown]
  - Portal vein thrombosis [Unknown]
  - Deep vein thrombosis [Unknown]
  - Protein S deficiency [Unknown]

NARRATIVE: CASE EVENT DATE: 20130101
